FAERS Safety Report 8242622-6 (Version None)
Quarter: 2012Q1

REPORT INFORMATION
  Report Type: 
  Country: None (occurrence: None)
  Receive Date: 20120329
  Receipt Date: 20120321
  Transmission Date: 20120608
  Serious: Yes (Other)
  Sender: FDA-Public Use
  Company Number: PHHY2012CZ024721

PATIENT
  Age: 70 Year
  Sex: Male

DRUGS (1)
  1. ZOLEDRONOC ACID [Suspect]
     Dosage: 5 MG, ONCE A YEAR

REACTIONS (1)
  - RENAL DISORDER [None]
